FAERS Safety Report 5642794-3 (Version None)
Quarter: 2008Q1

REPORT INFORMATION
  Report Type: 
  Country: None (occurrence: None)
  Receive Date: 20080227
  Receipt Date: 20080227
  Transmission Date: 20080703
  Serious: Yes (Other)
  Sender: FDA-Public Use
  Company Number: None

PATIENT
  Sex: Female
  Weight: 65.7716 kg

DRUGS (2)
  1. CYMBALTA [Suspect]
     Indication: DEPRESSION
     Dosage: 90 MG-3 CAPS- DAILY PO
     Route: 048
     Dates: start: 20070901, end: 20080222
  2. CYMBALTA [Suspect]
     Indication: PAIN MANAGEMENT
     Dosage: 90 MG-3 CAPS- DAILY PO
     Route: 048
     Dates: start: 20070901, end: 20080222

REACTIONS (8)
  - DISORIENTATION [None]
  - DIZZINESS [None]
  - DRUG WITHDRAWAL SYNDROME [None]
  - HEADACHE [None]
  - PARAESTHESIA [None]
  - TINNITUS [None]
  - VERTIGO [None]
  - VISION BLURRED [None]
